FAERS Safety Report 4497012-9 (Version None)
Quarter: 2004Q3

REPORT INFORMATION
  Report Type: 
  Country: None (occurrence: None)
  Receive Date: 20040928
  Receipt Date: 20040728
  Transmission Date: 20050211
  Serious: No
  Sender: FDA-Public Use
  Company Number: 04P-163-0268954-00

PATIENT
  Age: 58 Year
  Sex: Female
  Weight: 54.4316 kg

DRUGS (13)
  1. HUMIRA [Suspect]
     Indication: RHEUMATOID ARTHRITIS
     Dosage: 40 MG , 1 IN 2 WK, SUBCUTANEOUS
     Route: 058
     Dates: start: 20030101, end: 20040719
  2. LISINOPRIL [Concomitant]
  3. HYDROCHLOROTHIAZIDE [Concomitant]
  4. LANSOPRAZOLE [Concomitant]
  5. RISEDRONATE SODIUM [Concomitant]
  6. AMITRIPTYLINE HYDROCHLORIDE [Concomitant]
  7. TRAMADOL HCL [Concomitant]
  8. VICODIN [Concomitant]
  9. GABAPENTIN [Concomitant]
  10. BENICAR [Concomitant]
  11. CALCIUM [Concomitant]
  12. OSTEOPOROSIS [Concomitant]
  13. MULTIVITAMIN [Concomitant]

REACTIONS (10)
  - ANAEMIA [None]
  - BURNING SENSATION [None]
  - NASAL ULCER [None]
  - ORAL DISCOMFORT [None]
  - PRURITUS [None]
  - RASH [None]
  - SINUS DISORDER [None]
  - SKIN DISORDER [None]
  - STOMATITIS [None]
  - WEIGHT DECREASED [None]
